FAERS Safety Report 20591742 (Version 4)
Quarter: 2022Q4

REPORT INFORMATION
  Report Type: Spontaneous
  Country: JP (occurrence: JP)
  Receive Date: 20220314
  Receipt Date: 20221027
  Transmission Date: 20230113
  Serious: Yes (Death, Hospitalization, Other)
  Sender: FDA-Public Use
  Company Number: JP-BRISTOL-MYERS SQUIBB COMPANY-BMS-2022-035002

PATIENT
  Age: 7 Decade
  Sex: Male

DRUGS (7)
  1. YERVOY [Suspect]
     Active Substance: IPILIMUMAB
     Indication: Non-small cell lung cancer
     Route: 041
     Dates: start: 20220111, end: 20220202
  2. OPDIVO [Suspect]
     Active Substance: NIVOLUMAB
     Indication: Non-small cell lung cancer
     Route: 041
     Dates: start: 20220111, end: 20220202
  3. OPDIVO [Suspect]
     Active Substance: NIVOLUMAB
     Dosage: UNKNOWN
     Route: 041
     Dates: start: 20220202
  4. CARBOPLATIN [Suspect]
     Active Substance: CARBOPLATIN
     Indication: Non-small cell lung cancer
     Route: 065
  5. CARBOPLATIN [Suspect]
     Active Substance: CARBOPLATIN
     Route: 065
     Dates: start: 20220202
  6. PEMETREXED [Suspect]
     Active Substance: PEMETREXED
     Indication: Non-small cell lung cancer
     Route: 065
  7. PEMETREXED [Suspect]
     Active Substance: PEMETREXED
     Route: 065
     Dates: start: 20220202

REACTIONS (8)
  - Haematoma [Fatal]
  - Hepatic function abnormal [Fatal]
  - Renal impairment [Fatal]
  - Disorientation [Fatal]
  - Enterocolitis [Fatal]
  - Pyrexia [Fatal]
  - Disseminated intravascular coagulation [Unknown]
  - Febrile neutropenia [Unknown]

NARRATIVE: CASE EVENT DATE: 20220113
